FAERS Safety Report 10747165 (Version 1)
Quarter: 2015Q1

REPORT INFORMATION
  Report Type: Spontaneous
  Country: US (occurrence: US)
  Receive Date: 20150129
  Receipt Date: 20150129
  Transmission Date: 20150721
  Serious: Yes (Other)
  Sender: FDA-Public Use
  Company Number: US-ACCORD-028217

PATIENT
  Age: 76 Year
  Sex: Male

DRUGS (1)
  1. ANASTROZOLE ACCORD [Suspect]
     Active Substance: ANASTROZOLE
     Indication: BLOOD OESTROGEN INCREASED
     Dates: start: 20140922, end: 20141218

REACTIONS (11)
  - Pain in extremity [Recovering/Resolving]
  - Pruritus [Recovering/Resolving]
  - Memory impairment [Recovering/Resolving]
  - Aggression [Recovering/Resolving]
  - Product use issue [Unknown]
  - Confusional state [Recovering/Resolving]
  - Abdominal pain [Recovering/Resolving]
  - Mood altered [Recovering/Resolving]
  - Dyspnoea [Recovering/Resolving]
  - Chest pain [Recovering/Resolving]
  - Vertigo [Recovering/Resolving]
